FAERS Safety Report 10416466 (Version 1)
Quarter: 2014Q3

REPORT INFORMATION
  Report Type: Not Available
  Country: ES (occurrence: ES)
  Receive Date: 20140828
  Receipt Date: 20140828
  Transmission Date: 20150326
  Serious: Yes (Life-Threatening, Hospitalization)
  Sender: FDA-Public Use
  Company Number: ES-NAPPMUNDI-DEU-2014-0015184

PATIENT
  Age: 71 Year
  Sex: Female

DRUGS (5)
  1. TRYPTIZOL [Interacting]
     Active Substance: AMITRIPTYLINE HYDROCHLORIDE
     Indication: PERONEAL MUSCULAR ATROPHY
     Dosage: 300 MG, DAILY
     Route: 048
     Dates: start: 20140716, end: 20140719
  2. TRADONAL [Interacting]
     Active Substance: TRAMADOL HYDROCHLORIDE
     Dosage: 450 MG, DAILY
     Route: 048
     Dates: start: 2013, end: 20140715
  3. TARGIN 5MG/2.5MG COMPRIMIDOS DE LIBERACION PROLONGADA [Suspect]
     Active Substance: NALOXONE HYDROCHLORIDE\OXYCODONE HYDROCHLORIDE
     Indication: BACK PAIN
     Dosage: 10/5 MG, DAILY
     Route: 048
     Dates: start: 20140718, end: 20140719
  4. TRYPTIZOL [Interacting]
     Active Substance: AMITRIPTYLINE HYDROCHLORIDE
     Dosage: 150 MG, DAILY
     Route: 048
     Dates: end: 20140715
  5. TRADONAL [Interacting]
     Active Substance: TRAMADOL HYDROCHLORIDE
     Indication: PRODUCT USED FOR UNKNOWN INDICATION
     Dosage: 900 MG, DAILY
     Route: 048
     Dates: start: 20140716, end: 20140719

REACTIONS (2)
  - Drug-induced liver injury [Recovering/Resolving]
  - Cholestasis [Recovered/Resolved]

NARRATIVE: CASE EVENT DATE: 20140717
